FAERS Safety Report 7635191-2 (Version None)
Quarter: 2011Q3

REPORT INFORMATION
  Report Type: 
  Country: None (occurrence: None)
  Receive Date: 20110726
  Receipt Date: 20110725
  Transmission Date: 20111222
  Serious: Yes (Hospitalization)
  Sender: FDA-Public Use
  Company Number: SE-BRISTOL-MYERS SQUIBB COMPANY-15921307

PATIENT
  Age: 81 Year
  Sex: Female

DRUGS (9)
  1. ASPIRIN [Concomitant]
     Indication: THROMBOSIS PROPHYLAXIS
     Route: 048
  2. AMLODIPINE [Concomitant]
     Indication: HYPERTENSION
     Route: 048
  3. BLINDED: SAXAGLIPTIN [Suspect]
     Indication: TYPE 2 DIABETES MELLITUS
     Dates: start: 20100726
  4. PLACEBO [Suspect]
     Indication: TYPE 2 DIABETES MELLITUS
     Dates: start: 20100726
  5. GLIMEPIRIDE [Suspect]
     Indication: TYPE 2 DIABETES MELLITUS
     Dates: start: 20100726
  6. ENALAPRIL MALEATE [Concomitant]
     Indication: HYPERTENSION
     Route: 048
     Dates: start: 20110110
  7. ALVEDON [Concomitant]
     Indication: ARTHRALGIA
     Route: 048
  8. METFORMIN HCL [Suspect]
     Indication: DIABETES MELLITUS
     Route: 048
  9. LASIX [Concomitant]
     Indication: HYPERTENSION
     Route: 048

REACTIONS (1)
  - APPENDICITIS [None]
